FAERS Safety Report 25522562 (Version 2)
Quarter: 2025Q3

REPORT INFORMATION
  Report Type: Spontaneous
  Country: EU (occurrence: EU)
  Receive Date: 20250707
  Receipt Date: 20250811
  Transmission Date: 20251021
  Serious: Yes (Death, Other)
  Sender: PIRAMAL
  Company Number: EU-PIRAMAL CRITICAL CARE LIMITED-2025-PPL-000403

PATIENT

DRUGS (12)
  1. ISOFLURANE [Suspect]
     Active Substance: ISOFLURANE
     Indication: Sedation
     Dates: start: 20250619
  2. ISOFLURANE [Suspect]
     Active Substance: ISOFLURANE
  3. LEVETIRACETAM [Concomitant]
     Active Substance: LEVETIRACETAM
     Indication: Epilepsy
  4. LEVETIRACETAM [Concomitant]
     Active Substance: LEVETIRACETAM
  5. LACOSAMIDE [Concomitant]
     Active Substance: LACOSAMIDE
     Indication: Epilepsy
  6. MIDAZOLAM [Concomitant]
     Active Substance: MIDAZOLAM
     Indication: Epilepsy
  7. MIDAZOLAM [Concomitant]
     Active Substance: MIDAZOLAM
  8. MIDAZOLAM [Concomitant]
     Active Substance: MIDAZOLAM
  9. PROPOFOL [Concomitant]
     Active Substance: PROPOFOL
     Indication: Sedation
  10. REMIFENTANIL [Concomitant]
     Active Substance: REMIFENTANIL
     Indication: Sedation
  11. PHENYTOIN [Concomitant]
     Active Substance: PHENYTOIN
     Indication: Sedation
     Dates: start: 20250617, end: 20250618
  12. VALPROATE [Concomitant]
     Active Substance: VALPROIC ACID
     Indication: Sedation
     Dates: start: 20250614, end: 20250617

REACTIONS (2)
  - Hyperthermia malignant [Fatal]
  - Product use in unapproved indication [Unknown]

NARRATIVE: CASE EVENT DATE: 20250619
